FAERS Safety Report 16728358 (Version 2)
Quarter: 2019Q3

REPORT INFORMATION
  Report Type: Spontaneous
  Country: US (occurrence: US)
  Receive Date: 20190822
  Receipt Date: 20190828
  Transmission Date: 20191005
  Serious: No
  Sender: FDA-Public Use
  Company Number: US-SHIRE-US201927032

PATIENT
  Age: 72 Year
  Sex: Female
  Weight: 61.22 kg

DRUGS (2)
  1. LIPITOR [Concomitant]
     Active Substance: ATORVASTATIN CALCIUM
     Indication: BLOOD CHOLESTEROL
  2. XIIDRA [Suspect]
     Active Substance: LIFITEGRAST
     Indication: DRY EYE
     Dosage: 1 GTT DROPS, 2X/DAY:BID
     Route: 047
     Dates: start: 20190725, end: 20190730

REACTIONS (7)
  - Secretion discharge [Unknown]
  - Eye irritation [Unknown]
  - Rhinorrhoea [Recovered/Resolved]
  - Eye discharge [Recovered/Resolved]
  - Product container issue [Recovered/Resolved]
  - Product use complaint [Unknown]
  - Dry eye [Recovered/Resolved]

NARRATIVE: CASE EVENT DATE: 20190725
